FAERS Safety Report 15640739 (Version 1)
Quarter: 2018Q4

REPORT INFORMATION
  Report Type: Spontaneous
  Country: DE (occurrence: DE)
  Receive Date: 20181120
  Receipt Date: 20181120
  Transmission Date: 20190205
  Serious: Yes (Other)
  Sender: FDA-Public Use
  Company Number: DE-TEVA-2018-DE-976061

PATIENT
  Age: 64 Year
  Sex: Female
  Weight: 72 kg

DRUGS (2)
  1. LOPERAMID [Suspect]
     Active Substance: LOPERAMIDE
     Dosage: 2MG 1 TABLET
     Route: 048
     Dates: start: 20180927, end: 20180930
  2. INSULIN [Concomitant]
     Active Substance: INSULIN NOS

REACTIONS (2)
  - Hypoglycaemic unconsciousness [Recovered/Resolved]
  - Nausea [Recovered/Resolved]

NARRATIVE: CASE EVENT DATE: 20180930
